FAERS Safety Report 4836639-9 (Version None)
Quarter: 2005Q4

REPORT INFORMATION
  Report Type: 
  Country: None (occurrence: None)
  Receive Date: 20051121
  Receipt Date: 20051107
  Transmission Date: 20060501
  Serious: Yes (Other)
  Sender: FDA-Public Use
  Company Number: 2005126163

PATIENT
  Age: 80 Year
  Sex: Female

DRUGS (1)
  1. LYRICA [Suspect]
     Indication: NEURALGIA
     Dosage: 300 MG (150 MG, 2 IN 1 D), ORAL
     Route: 048
     Dates: start: 20050406, end: 20050610

REACTIONS (14)
  - ALANINE AMINOTRANSFERASE INCREASED [None]
  - BLOOD CHOLESTEROL INCREASED [None]
  - BLOOD CREATININE INCREASED [None]
  - DYSGEUSIA [None]
  - GAMMA-GLUTAMYLTRANSFERASE INCREASED [None]
  - HIGH DENSITY LIPOPROTEIN INCREASED [None]
  - LOW DENSITY LIPOPROTEIN INCREASED [None]
  - NASAL CONGESTION [None]
  - NASAL DRYNESS [None]
  - NASAL MUCOSAL DISORDER [None]
  - NOCTURNAL DYSPNOEA [None]
  - PAROSMIA [None]
  - RED BLOOD CELL SEDIMENTATION RATE INCREASED [None]
  - TREATMENT NONCOMPLIANCE [None]
